FAERS Safety Report 22915751 (Version 2)
Quarter: 2024Q3

REPORT INFORMATION
  Report Type: Spontaneous
  Country: US (occurrence: US)
  Receive Date: 20230907
  Receipt Date: 20240823
  Transmission Date: 20241017
  Serious: No
  Sender: CHATTEM
  Company Number: US-OPELLA-2023OHG004330

PATIENT
  Sex: Female

DRUGS (1)
  1. XYZAL ALLERGY 24HR [Suspect]
     Active Substance: LEVOCETIRIZINE DIHYDROCHLORIDE
     Indication: Hypersensitivity

REACTIONS (1)
  - Somnolence [Unknown]
